FAERS Safety Report 14572146 (Version 1)
Quarter: 2018Q1

REPORT INFORMATION
  Report Type: Spontaneous
  Country: US (occurrence: US)
  Receive Date: 20180226
  Receipt Date: 20180226
  Transmission Date: 20180509
  Serious: Yes (Hospitalization)
  Sender: FDA-Public Use
  Company Number: US-DEPOMED, INC.-US-2018DEP000421

PATIENT

DRUGS (2)
  1. ZIPSOR [Suspect]
     Active Substance: DICLOFENAC POTASSIUM
     Indication: PRODUCT USED FOR UNKNOWN INDICATION
     Dosage: 25 MG, QID
     Route: 048
     Dates: start: 20180115, end: 2018
  2. ZIPSOR [Suspect]
     Active Substance: DICLOFENAC POTASSIUM
     Dosage: 25 MG, QID
     Route: 048
     Dates: start: 2018

REACTIONS (1)
  - Hip arthroplasty [Unknown]

NARRATIVE: CASE EVENT DATE: 20180202
